FAERS Safety Report 7978547-0 (Version None)
Quarter: 2011Q4

REPORT INFORMATION
  Report Type: 
  Country: None (occurrence: None)
  Receive Date: 20111214
  Receipt Date: 20111003
  Transmission Date: 20120403
  Serious: No
  Sender: FDA-Public Use
  Company Number: US-BAYER-2011-077863

PATIENT
  Age: 35 Year
  Sex: Male
  Weight: 112.2 kg

DRUGS (1)
  1. MIRENA [Suspect]

REACTIONS (3)
  - DYSPAREUNIA [None]
  - PENILE PAIN [None]
  - PENIS INJURY [None]
